FAERS Safety Report 12699990 (Version 1)
Quarter: 2016Q3

REPORT INFORMATION
  Report Type: Spontaneous
  Country: US (occurrence: US)
  Receive Date: 20160830
  Receipt Date: 20160830
  Transmission Date: 20161109
  Serious: Yes (Hospitalization)
  Sender: FDA-Public Use
  Company Number: US-FDC LIMITED-2016RIS00126

PATIENT
  Age: 4 Week
  Sex: Female
  Weight: 1.9 kg

DRUGS (2)
  1. TIMOLOL. [Suspect]
     Active Substance: TIMOLOL
     Dosage: 1 DROP ON THE EYELID, 1 DROP INTRAOCULARLY, AND 1 DROP ON A SECOND HEMATOMA, TWICE A DAY
     Route: 061
  2. TIMOLOL. [Suspect]
     Active Substance: TIMOLOL
     Indication: EYELID HAEMANGIOMA
     Dosage: 1 DROP ON THE EYELID AND 1 DROP INTRAOCULARLY, TWICE A DAY
     Route: 061

REACTIONS (2)
  - Bradycardia [Recovered/Resolved]
  - Hypothermia [Recovered/Resolved]
